APPROVED DRUG PRODUCT: TRANEXAMIC ACID
Active Ingredient: TRANEXAMIC ACID
Strength: 1GM/100ML (10MG/ML)
Dosage Form/Route: SOLUTION;INTRAVENOUS
Application: N212020 | Product #001 | TE Code: AP
Applicant: EXELA PHARMA SCIENCES LLC
Approved: Apr 15, 2019 | RLD: Yes | RS: Yes | Type: RX